FAERS Safety Report 20138548 (Version 1)
Quarter: 2021Q4

REPORT INFORMATION
  Report Type: Spontaneous
  Country: CN (occurrence: CN)
  Receive Date: 20211202
  Receipt Date: 20211202
  Transmission Date: 20220303
  Serious: Yes (Other)
  Sender: FDA-Public Use
  Company Number: CN-ALKEM LABORATORIES LIMITED-CN-ALKEM-2021-05523

PATIENT
  Age: 46 Year
  Sex: Male

DRUGS (5)
  1. ESOMEPRAZOLE MAGNESIUM [Suspect]
     Active Substance: ESOMEPRAZOLE MAGNESIUM
     Indication: Helicobacter infection
     Dosage: 40 MILLIGRAM, QD
     Route: 065
  2. AMOXICILLIN [Concomitant]
     Active Substance: AMOXICILLIN
     Indication: Helicobacter infection
     Dosage: 1000 MILLIGRAM, QD
     Route: 065
  3. FURAZOLIDONE [Concomitant]
     Active Substance: FURAZOLIDONE
     Indication: Helicobacter infection
     Dosage: 100 MILLIGRAM, QD
     Route: 065
  4. TETRACYCLINE [Concomitant]
     Active Substance: TETRACYCLINE
     Indication: Helicobacter infection
     Dosage: 500 MILLIGRAM, QID
     Route: 065
  5. BISMUTH [Concomitant]
     Active Substance: BISMUTH
     Indication: Helicobacter infection
     Dosage: 200 MILLIGRAM, QD
     Route: 065

REACTIONS (1)
  - Leukopenia [Unknown]
